FAERS Safety Report 8165637-5 (Version None)
Quarter: 2012Q1

REPORT INFORMATION
  Report Type: 
  Country: None (occurrence: None)
  Receive Date: 20120227
  Receipt Date: 20120213
  Transmission Date: 20120608
  Serious: Yes (Other)
  Sender: FDA-Public Use
  Company Number: US-PAR PHARMACEUTICAL, INC-2012SCPR004207

PATIENT

DRUGS (4)
  1. LEVETIRACETAM [Suspect]
     Indication: EPILEPSY
     Dosage: 2 TABLETS, EVERY MORNING
     Route: 048
     Dates: start: 20120201, end: 20120208
  2. ZOLPIDEM TARTRATE [Suspect]
     Indication: PRODUCT USED FOR UNKNOWN INDICATION
     Dosage: 1 TABLET AT NIGHT
     Route: 048
  3. CALCIUM 600 + D [Concomitant]
     Indication: OSTEOPENIA
     Dosage: ONE TABLET THREE TIMES A DAY
     Route: 048
  4. MULTI-VITAMIN [Concomitant]
     Indication: PRODUCT USED FOR UNKNOWN INDICATION
     Dosage: ONE TABLET ONCE DAILY
     Route: 065

REACTIONS (5)
  - FALL [None]
  - VISION BLURRED [None]
  - DYSSTASIA [None]
  - TREMOR [None]
  - CHILLS [None]
